FAERS Safety Report 24166842 (Version 1)
Quarter: 2024Q3

REPORT INFORMATION
  Report Type: Spontaneous
  Country: FR (occurrence: FR)
  Receive Date: 20240802
  Receipt Date: 20240802
  Transmission Date: 20241016
  Serious: Yes (Death, Hospitalization, Other)
  Sender: AUROBINDO
  Company Number: FR-AFSSAPS-PP2024000820

PATIENT
  Age: 56 Year
  Sex: Female
  Weight: 45.5 kg

DRUGS (5)
  1. AMIODARONE [Suspect]
     Active Substance: AMIODARONE
     Indication: Torsade de pointes
     Dosage: 900 MILLIGRAM, ONCE A DAY (900 MG/J)
     Route: 042
     Dates: start: 20240404, end: 20240407
  2. MYCOPHENOLATE MOFETIL [Suspect]
     Active Substance: MYCOPHENOLATE MOFETIL
     Indication: Transplant rejection
     Dosage: 1500 MILLIGRAM, ONCE A DAY (750 MG / TWICE A DAY)
     Route: 048
     Dates: start: 20200115
  3. ETANERCEPT [Suspect]
     Active Substance: ETANERCEPT
     Indication: Transplant rejection
     Dosage: UNK (UNKNOWN DOSE)
     Route: 042
     Dates: start: 20240318, end: 20240320
  4. PROGRAF [Suspect]
     Active Substance: TACROLIMUS
     Indication: Transplant rejection
     Dosage: 6 MILLIGRAM, ONCE A DAY
     Route: 048
     Dates: start: 20200115
  5. THYMOGLOBULINE [Suspect]
     Active Substance: LAPINE T-LYMPHOCYTE IMMUNE GLOBULIN
     Indication: Transplant rejection
     Dosage: 75 MILLIGRAM, 1 TOTAL
     Route: 042
     Dates: start: 20240316, end: 20240318

REACTIONS (3)
  - Progressive multifocal leukoencephalopathy [Fatal]
  - Infection [Fatal]
  - Interstitial lung disease [Not Recovered/Not Resolved]

NARRATIVE: CASE EVENT DATE: 20240320
